FAERS Safety Report 7248506 (Version 9)
Quarter: 2014Q4

REPORT INFORMATION
  Report Type: Report from Study
  Country: JP (occurrence: JP)
  Receive Date: 20100118
  Receipt Date: 20141112
  Transmission Date: 20150529
  Serious: Yes (Hospitalization)
  Sender: FDA-Public Use
  Company Number: PHHO2010JP00822

PATIENT
  Age: 4 Year
  Sex: Male
  Weight: 13 kg

DRUGS (8)
  1. ONON [Concomitant]
     Active Substance: PRANLUKAST
     Indication: PRODUCT USED FOR UNKNOWN INDICATION
     Route: 065
  2. FOLIAMIN [Concomitant]
     Active Substance: FOLIC ACID
     Indication: PRODUCT USED FOR UNKNOWN INDICATION
     Route: 065
  3. ACZ885 [Suspect]
     Active Substance: CANAKINUMAB
     Dosage: 26.4 MG, UNK
     Route: 058
     Dates: start: 20100224, end: 20100224
  4. ACZ885 [Suspect]
     Active Substance: CANAKINUMAB
     Dosage: 31 MG, UNK
     Route: 058
     Dates: start: 20110524, end: 20110524
  5. ACZ885 [Suspect]
     Active Substance: CANAKINUMAB
     Indication: CRYOPYRIN ASSOCIATED PERIODIC SYNDROME
     Dosage: 26 MG, UNK
     Route: 058
     Dates: start: 20100106, end: 20100106
  6. RHEUMATREX [Concomitant]
     Active Substance: METHOTREXATE SODIUM
     Indication: PRODUCT USED FOR UNKNOWN INDICATION
     Route: 065
  7. NAIXAN [Concomitant]
     Active Substance: NAPROXEN SODIUM
     Indication: CHRONIC INFANTILE NEUROLOGICAL CUTANEOUS AND ARTICULAR SYNDROME
     Dosage: 480 MG, UNK
     Route: 048
     Dates: start: 20100802
  8. ALLERMIST [Concomitant]
     Active Substance: FLUTICASONE FUROATE
     Indication: PRODUCT USED FOR UNKNOWN INDICATION
     Route: 065

REACTIONS (13)
  - Nasal obstruction [Recovered/Resolved]
  - Haemophilus infection [Recovered/Resolved]
  - Pyrexia [Recovered/Resolved]
  - Pleural effusion [Recovered/Resolved]
  - Hypoalbuminaemia [Recovering/Resolving]
  - Computerised tomogram thorax abnormal [Recovered/Resolved]
  - Pneumonia streptococcal [Recovered/Resolved]
  - Decreased appetite [Recovered/Resolved]
  - Hypoxia [Recovered/Resolved]
  - Vomiting [Recovered/Resolved]
  - Pulmonary oedema [Recovered/Resolved]
  - Disseminated intravascular coagulation [Recovered/Resolved]
  - Staphylococcal infection [Recovered/Resolved]

NARRATIVE: CASE EVENT DATE: 20100107
